FAERS Safety Report 8602563-9 (Version None)
Quarter: 2012Q3

REPORT INFORMATION
  Report Type: 
  Country: None (occurrence: None)
  Receive Date: 20120817
  Receipt Date: 20120815
  Transmission Date: 20120928
  Serious: No
  Sender: FDA-Public Use
  Company Number: US-BAYER-2012-084557

PATIENT
  Age: 53 Year
  Sex: Male

DRUGS (2)
  1. GADAVIST [Suspect]
     Dosage: 10.5 ML, ONCE
     Dates: start: 20120815, end: 20120815
  2. GADAVIST [Suspect]
     Indication: NUCLEAR MAGNETIC RESONANCE IMAGING
     Dosage: UNK UNK, ONCE
     Dates: start: 20120731, end: 20120731

REACTIONS (2)
  - VOMITING [None]
  - NAUSEA [None]
